FAERS Safety Report 6437459-4 (Version None)
Quarter: 2009Q4

REPORT INFORMATION
  Report Type: 
  Country: None (occurrence: None)
  Receive Date: 20091112
  Receipt Date: 20091029
  Transmission Date: 20100525
  Serious: Yes (Other)
  Sender: FDA-Public Use
  Company Number: PHHY2009JP47571

PATIENT
  Sex: Female
  Weight: 48 kg

DRUGS (3)
  1. ZOMETA [Suspect]
     Indication: METASTASES TO BONE
     Dosage: 4 MG (PER ADMINISTRATION)
     Route: 042
     Dates: start: 20060201
  2. AREDIA [Suspect]
     Indication: METASTASES TO BONE
     Dosage: UNK
     Route: 042
     Dates: start: 20030201
  3. TAXOTERE [Concomitant]
     Dosage: UNK

REACTIONS (11)
  - BONE DISORDER [None]
  - DRUG ERUPTION [None]
  - GINGIVAL BLEEDING [None]
  - INFLAMMATION [None]
  - MUCOSAL EXFOLIATION [None]
  - OSTEONECROSIS [None]
  - PAIN [None]
  - PURULENT DISCHARGE [None]
  - SECONDARY SEQUESTRUM [None]
  - SINUSITIS [None]
  - TOOTH EXTRACTION [None]
